FAERS Safety Report 8523027-7 (Version None)
Quarter: 2012Q3

REPORT INFORMATION
  Report Type: 
  Country: None (occurrence: None)
  Receive Date: 20120720
  Receipt Date: 20120716
  Transmission Date: 20120928
  Serious: Yes (Hospitalization)
  Sender: FDA-Public Use
  Company Number: AU-ROCHE-589630

PATIENT
  Sex: Male
  Weight: 64 kg

DRUGS (10)
  1. MABTHERA [Suspect]
     Indication: B-CELL LYMPHOMA
     Dosage: DATE OF LAST DOSE PRIOR TO THE SAE: 20 OCTOBER 2008
     Route: 042
  2. METFORMIN HYDROCHLORIDE [Concomitant]
     Dates: end: 20081002
  3. CARVEDILOL [Concomitant]
     Dates: end: 20081211
  4. ATORVASTATIN [Concomitant]
  5. MABTHERA [Suspect]
  6. ASPIRIN [Concomitant]
  7. MAGMIN [Concomitant]
     Dosage: TOTAL DAILY DOSE REPORTED AS 2 TABLETS
  8. SIMVASTATIN [Concomitant]
  9. MAGMIN [Concomitant]
     Dosage: DOSE REPORTED AS: 1 DAILY
  10. RAMIPRIL [Concomitant]

REACTIONS (3)
  - DEHYDRATION [None]
  - DIARRHOEA [None]
  - FEBRILE NEUTROPENIA [None]
